FAERS Safety Report 8721215 (Version 5)
Quarter: 2013Q2

REPORT INFORMATION
  Report Type: Spontaneous
  Country: US (occurrence: US)
  Receive Date: 20120813
  Receipt Date: 20130429
  Transmission Date: 20140414
  Serious: No
  Sender: FDA-Public Use
  Company Number: US-ASTRAZENECA-2012SE55229

PATIENT
  Age: 56 Year
  Sex: Female
  Weight: 63 kg

DRUGS (11)
  1. SYMBICORT PMDI [Suspect]
     Dosage: UNKNOWN FREQUENCY.
     Route: 055
  2. PULMICORT FLEXHALER [Suspect]
     Indication: CHRONIC OBSTRUCTIVE PULMONARY DISEASE
     Dosage: 180 MCG 2 PUFFS, BID
     Route: 055
  3. SYNTHROID [Suspect]
     Route: 065
  4. PEGASYS [Suspect]
     Indication: HEPATITIS C
     Dosage: 1 SHOT PER WEEK
     Route: 065
  5. CHEMO [Suspect]
     Route: 065
  6. SPIRIVA [Concomitant]
     Indication: CHRONIC OBSTRUCTIVE PULMONARY DISEASE
     Route: 048
  7. ATIVAN [Concomitant]
     Indication: ANXIETY
     Route: 048
     Dates: start: 2003
  8. MELATONIN [Concomitant]
     Indication: SLEEP DISORDER
     Route: 048
  9. ARMOUR THYROID [Concomitant]
     Indication: THYROID DISORDER
     Route: 048
     Dates: start: 201204, end: 2012
  10. ARMOUR THYROID [Concomitant]
     Indication: THYROID DISORDER
     Route: 048
     Dates: end: 2012
  11. ARMOUR THYROID [Concomitant]
     Indication: THYROID DISORDER
     Route: 048
     Dates: start: 20120926

REACTIONS (14)
  - Lung disorder [Not Recovered/Not Resolved]
  - Dyspnoea [Unknown]
  - Wheezing [Unknown]
  - Drug intolerance [Unknown]
  - Dementia [Unknown]
  - Hepatitis C [Recovered/Resolved]
  - Fatigue [Unknown]
  - Thyroid disorder [Unknown]
  - Thyroid function test abnormal [Unknown]
  - Cough [Unknown]
  - Muscle spasms [Recovered/Resolved]
  - Depression [Unknown]
  - Abnormal behaviour [Unknown]
  - Drug ineffective [Unknown]
